FAERS Safety Report 19276884 (Version 1)
Quarter: 2021Q2

REPORT INFORMATION
  Report Type: Spontaneous
  Country: US (occurrence: US)
  Receive Date: 20210519
  Receipt Date: 20210519
  Transmission Date: 20210717
  Serious: No
  Sender: FDA-Public Use
  Company Number: US-HORIZON THERAPEUTICS-HZN-2021-001462

PATIENT
  Sex: Female

DRUGS (1)
  1. TEPROTUMUMAB?TRBW [Suspect]
     Active Substance: TEPROTUMUMAB-TRBW
     Indication: PRODUCT USED FOR UNKNOWN INDICATION
     Dosage: UNK
     Route: 065
     Dates: end: 202008

REACTIONS (5)
  - Eye pain [Unknown]
  - Onychoclasis [Recovering/Resolving]
  - Eye swelling [Unknown]
  - Lacrimation increased [Unknown]
  - Alopecia [Recovering/Resolving]
